FAERS Safety Report 16778363 (Version 4)
Quarter: 2019Q4

REPORT INFORMATION
  Report Type: Report from Study
  Country: None (occurrence: US)
  Receive Date: 20190906
  Receipt Date: 20191204
  Transmission Date: 20200122
  Serious: Yes (Hospitalization, Other)
  Sender: FDA-Public Use
  Company Number: US-ABBVIE-19K-163-2910780-00

PATIENT
  Age: 17 Year
  Sex: Female
  Weight: 42.68 kg

DRUGS (5)
  1. ALBUTEROL. [Concomitant]
     Active Substance: ALBUTEROL
     Indication: ASTHMA
  2. HUMIRA [Suspect]
     Active Substance: ADALIMUMAB
     Indication: CROHN^S DISEASE
  3. CURCUMIN [Concomitant]
     Active Substance: CURCUMIN
     Indication: INFLAMMATION
  4. HUMIRA [Suspect]
     Active Substance: ADALIMUMAB
     Indication: CROHN^S DISEASE
     Dosage: CITRATE FREE
     Route: 058
     Dates: start: 20190414
  5. FISH OIL [Concomitant]
     Active Substance: FISH OIL
     Indication: INFLAMMATION

REACTIONS (8)
  - Psoriasis [Recovering/Resolving]
  - Gastrointestinal scarring [Recovering/Resolving]
  - Appendix disorder [Recovering/Resolving]
  - Gastrointestinal obstruction [Recovering/Resolving]
  - Device issue [Recovered/Resolved]
  - Gastrointestinal ulcer [Recovering/Resolving]
  - Gastrointestinal stenosis [Recovering/Resolving]
  - Sinusitis fungal [Recovering/Resolving]

NARRATIVE: CASE EVENT DATE: 2019
